FAERS Safety Report 5339465-X (Version None)
Quarter: 2007Q2

REPORT INFORMATION
  Report Type: 
  Country: None (occurrence: None)
  Receive Date: 20070525
  Receipt Date: 20070510
  Transmission Date: 20071010
  Serious: Yes (Other)
  Sender: FDA-Public Use
  Company Number: 100#08#2007-01522

PATIENT
  Age: 66 Year
  Sex: Male

DRUGS (5)
  1. CISPLATIN [Suspect]
     Indication: PLEURAL MESOTHELIOMA
     Dosage: SEE IMAGE
     Route: 042
     Dates: start: 20030101, end: 20030601
  2. CISPLATIN [Suspect]
     Indication: PLEURAL MESOTHELIOMA
     Dosage: SEE IMAGE
     Route: 042
     Dates: start: 20030801, end: 20040201
  3. CARBOPLATIN [Suspect]
     Indication: PLEURAL MESOTHELIOMA
     Dosage: 400 MG
  4. PEMETREXED (PEMETREXED) (PEMETREXD) [Concomitant]
  5. GEMCITABINE [Concomitant]

REACTIONS (3)
  - ABDOMINAL PAIN UPPER [None]
  - ANAPHYLACTIC REACTION [None]
  - SKIN TEST POSITIVE [None]
